FAERS Safety Report 9306276 (Version 1)
Quarter: 2013Q2

REPORT INFORMATION
  Report Type: Spontaneous
  Country: US (occurrence: US)
  Receive Date: 20130523
  Receipt Date: 20130523
  Transmission Date: 20140414
  Serious: No
  Sender: FDA-Public Use
  Company Number: US-ASTRAZENECA-2013SE32657

PATIENT
  Age: 72 Year
  Sex: Female
  Weight: 48.1 kg

DRUGS (11)
  1. SYMBICORT [Suspect]
     Indication: CHRONIC OBSTRUCTIVE PULMONARY DISEASE
     Dosage: 80/ 4.5  MCG, 1 PUFF DAILY
     Route: 055
     Dates: start: 2012
  2. SPIRIVA [Concomitant]
     Dosage: TWO TIMES A DAY
  3. ATENOLOL [Concomitant]
     Dosage: 150TWO TIMES A DAY
  4. SIMVASTATIN [Concomitant]
  5. VIT B 76 [Concomitant]
  6. VIT B 12 [Concomitant]
  7. VIT C [Concomitant]
  8. VIT E [Concomitant]
  9. FOLIC ACID [Concomitant]
  10. ASA [Concomitant]
  11. EFUDEX [Concomitant]

REACTIONS (9)
  - Weight decreased [Unknown]
  - Dyspnoea [Unknown]
  - Sputum retention [Unknown]
  - Mass [Unknown]
  - Swelling face [Recovering/Resolving]
  - Eye swelling [Recovering/Resolving]
  - Cough [Unknown]
  - Lip swelling [Recovering/Resolving]
  - Off label use [Unknown]
